FAERS Safety Report 17181030 (Version 2)
Quarter: 2019Q4

REPORT INFORMATION
  Report Type: Report from Study
  Country: US (occurrence: US)
  Receive Date: 20191219
  Receipt Date: 20191230
  Transmission Date: 20200122
  Serious: Yes (Death, Hospitalization, Other)
  Sender: FDA-Public Use
  Company Number: US-ACTELION-A-NJ2019-198566

PATIENT
  Age: 87 Year
  Sex: Male

DRUGS (16)
  1. METFORMIN [Concomitant]
     Active Substance: METFORMIN HYDROCHLORIDE
     Dosage: 500 MG
  2. POTASSIUM [Concomitant]
     Active Substance: POTASSIUM
     Dosage: 10 MG
  3. ASPIR LOW [Concomitant]
     Active Substance: ASPIRIN
     Dosage: 81 MG
  4. COQ10 [Concomitant]
     Active Substance: UBIDECARENONE
     Dosage: 200 MG
  5. IRON [Concomitant]
     Active Substance: IRON
     Dosage: 65 MG
  6. OXYBUTIN [Concomitant]
     Active Substance: OXYBUTYNIN
     Dosage: 5 MG
  7. PANTOPRAZOLE [Concomitant]
     Active Substance: PANTOPRAZOLE
     Dosage: 40 MG
  8. METOPROLOL. [Concomitant]
     Active Substance: METOPROLOL
     Dosage: 100 MG
  9. LEVOTHYROXIN [Concomitant]
     Active Substance: LEVOTHYROXINE
  10. SPIRONOLACTONE. [Concomitant]
     Active Substance: SPIRONOLACTONE
     Dosage: 25 MG
  11. BUMETANIDE. [Concomitant]
     Active Substance: BUMETANIDE
     Dosage: 1 MG
  12. DIGOXIN. [Concomitant]
     Active Substance: DIGOXIN
     Dosage: 125 MG
  13. TERAZOSIN [Concomitant]
     Active Substance: TERAZOSIN HYDROCHLORIDE
     Dosage: 10 MG
  14. OPSUMIT [Suspect]
     Active Substance: MACITENTAN
     Indication: PULMONARY ARTERIAL HYPERTENSION
     Dosage: 10 MG, QD
     Route: 048
  15. ALLOPURINOL. [Concomitant]
     Active Substance: ALLOPURINOL
     Dosage: 100 MG
  16. SIMVASTATIN. [Concomitant]
     Active Substance: SIMVASTATIN
     Dosage: 40 MG

REACTIONS (14)
  - Haemorrhage [Unknown]
  - Fatigue [Unknown]
  - Decreased appetite [Unknown]
  - Muscle spasms [Unknown]
  - Lymphadenopathy [Unknown]
  - Surgery [Unknown]
  - Death [Fatal]
  - Gallbladder disorder [Unknown]
  - Infection [Unknown]
  - Dyspnoea [Unknown]
  - Depression [Unknown]
  - Post procedural complication [Unknown]
  - Hospitalisation [Unknown]
  - Balance disorder [Unknown]

NARRATIVE: CASE EVENT DATE: 201911
